FAERS Safety Report 15504952 (Version 1)
Quarter: 2018Q4

REPORT INFORMATION
  Report Type: Spontaneous
  Country: CA (occurrence: CA)
  Receive Date: 20181016
  Receipt Date: 20181016
  Transmission Date: 20190205
  Serious: Yes (Other)
  Sender: FDA-Public Use
  Company Number: CA-COLGATE PALMOLIVE COMPANY-20181002400

PATIENT
  Age: 51 Year
  Sex: Male

DRUGS (1)
  1. COLGATE CAVITY PROTECTION GREAT REGULAR FLAVOR [Suspect]
     Active Substance: SODIUM MONOFLUOROPHOSPHATE
     Indication: PRODUCT USED FOR UNKNOWN INDICATION
     Dosage: UNKNOWN DOSE, TID
     Route: 048

REACTIONS (1)
  - Tooth loss [Unknown]
